FAERS Safety Report 6171928-X (Version None)
Quarter: 2009Q2

REPORT INFORMATION
  Report Type: 
  Country: None (occurrence: None)
  Receive Date: 20090429
  Receipt Date: 20090427
  Transmission Date: 20091009
  Serious: Yes (Other)
  Sender: FDA-Public Use
  Company Number: DE-ABBOTT-09P-062-0570154-00

PATIENT
  Sex: Female
  Weight: 105 kg

DRUGS (3)
  1. HUMIRA [Suspect]
     Indication: CROHN'S DISEASE
  2. SYTEMIC STEROIDS [Concomitant]
     Indication: CROHN'S DISEASE
  3. AZATHIOPRIN/6-MP [Concomitant]
     Indication: CROHN'S DISEASE
     Dosage: 2-2.5 MG/KG BODY WEIGHT

REACTIONS (2)
  - RENAL COLIC [None]
  - URINARY RETENTION [None]
